FAERS Safety Report 7413050-8 (Version None)
Quarter: 2011Q2

REPORT INFORMATION
  Report Type: 
  Country: None (occurrence: None)
  Receive Date: 20110408
  Receipt Date: 20110408
  Transmission Date: 20111010
  Serious: Yes (Other)
  Sender: FDA-Public Use
  Company Number: None

PATIENT
  Age: 32 Year
  Sex: Female
  Weight: 122.0176 kg

DRUGS (2)
  1. CEFDINIR [Suspect]
     Indication: VIRAL INFECTION
     Dosage: 1 PILL EVERY 12 HRS PO
     Route: 048
     Dates: start: 20110324, end: 20110406
  2. CEFDINIR [Suspect]
     Indication: LYMPHADENOPATHY
     Dosage: 1 PILL EVERY 12 HRS PO
     Route: 048
     Dates: start: 20110324, end: 20110406

REACTIONS (1)
  - RASH GENERALISED [None]
